FAERS Safety Report 5411682-X (Version None)
Quarter: 2007Q3

REPORT INFORMATION
  Report Type: 
  Country: None (occurrence: None)
  Receive Date: 20070810
  Receipt Date: 20070801
  Transmission Date: 20080115
  Serious: Yes (Other)
  Sender: FDA-Public Use
  Company Number: JP-MERCK-0707USA00015

PATIENT
  Age: 68 Year
  Sex: Female

DRUGS (2)
  1. ZETIA [Suspect]
     Indication: HYPERLIPIDAEMIA
     Route: 048
     Dates: start: 20070615, end: 20070617
  2. ZETIA [Suspect]
     Route: 048
     Dates: start: 20070618, end: 20070618

REACTIONS (2)
  - GAIT DISTURBANCE [None]
  - MYALGIA [None]
